FAERS Safety Report 12700654 (Version 1)
Quarter: 2016Q3

REPORT INFORMATION
  Report Type: Spontaneous
  Country: US (occurrence: US)
  Receive Date: 20160830
  Receipt Date: 20160830
  Transmission Date: 20161109
  Serious: No
  Sender: FDA-Public Use
  Company Number: US-SA-2016SA006172

PATIENT
  Age: 76 Year
  Sex: Female

DRUGS (2)
  1. MULTAQ [Suspect]
     Active Substance: DRONEDARONE
     Indication: SUPRAVENTRICULAR TACHYCARDIA
     Route: 065
     Dates: start: 201511
  2. MULTAQ [Suspect]
     Active Substance: DRONEDARONE
     Indication: VENTRICULAR EXTRASYSTOLES
     Route: 065
     Dates: start: 201511

REACTIONS (7)
  - Urinary tract infection [Not Recovered/Not Resolved]
  - Decreased appetite [Recovered/Resolved]
  - Influenza [Recovered/Resolved]
  - Weight decreased [Recovered/Resolved]
  - Alopecia [Not Recovered/Not Resolved]
  - Nausea [Recovered/Resolved]
  - Sleep disorder [Recovered/Resolved]
